FAERS Safety Report 5314925-6 (Version None)
Quarter: 2007Q2

REPORT INFORMATION
  Report Type: 
  Country: None (occurrence: None)
  Receive Date: 20070502
  Receipt Date: 20070430
  Transmission Date: 20071010
  Serious: Yes (Other)
  Sender: FDA-Public Use
  Company Number: GB-JNJFOC-20070500478

PATIENT
  Age: 6 Year
  Sex: Male

DRUGS (2)
  1. RISPERDAL [Suspect]
     Indication: LEARNING DISORDER
     Route: 048
  2. RISPERDAL [Suspect]
     Indication: AUTISM
     Route: 048

REACTIONS (1)
  - NEUTROPENIA [None]
